FAERS Safety Report 4412297-2 (Version None)
Quarter: 2004Q2

REPORT INFORMATION
  Report Type: 
  Country: None (occurrence: None)
  Receive Date: 20040630
  Receipt Date: 20040408
  Transmission Date: 20050107
  Serious: No
  Sender: FDA-Public Use
  Company Number: 04P-163-0257032-00

PATIENT
  Age: 47 Year
  Sex: Female
  Weight: 84.8226 kg

DRUGS (6)
  1. HUMIRA [Suspect]
     Indication: RHEUMATOID ARTHRITIS
     Dosage: 1 IN 2 WK, SUBCUTANEOUS
     Route: 058
     Dates: start: 20040201
  2. METHOTREXATE [Concomitant]
  3. PREDNISONE [Concomitant]
  4. IBUPROFEN [Concomitant]
  5. MULTI-VITAMINS [Concomitant]
  6. CALCIUM [Concomitant]

REACTIONS (2)
  - FATIGUE [None]
  - INJECTION SITE BURNING [None]
